FAERS Safety Report 8078113-5 (Version None)
Quarter: 2012Q1

REPORT INFORMATION
  Report Type: 
  Country: None (occurrence: None)
  Receive Date: 20120127
  Receipt Date: 20110125
  Transmission Date: 20120608
  Serious: No
  Sender: FDA-Public Use
  Company Number: US-ABBOTT-10P-163-0687075-00

PATIENT
  Age: 42 Year
  Sex: Female

DRUGS (4)
  1. MELOXICAM [Concomitant]
     Indication: PRODUCT USED FOR UNKNOWN INDICATION
  2. AEQ 49 [Concomitant]
     Indication: PRODUCT USED FOR UNKNOWN INDICATION
     Dosage: 1-2 TABLETS
  3. HUMIRA [Suspect]
     Indication: RHEUMATOID ARTHRITIS
     Dates: start: 20101010
  4. NEVIGIL [Concomitant]
     Indication: PRODUCT USED FOR UNKNOWN INDICATION

REACTIONS (6)
  - DRUG DOSE OMISSION [None]
  - ARTHRALGIA [None]
  - RHEUMATOID ARTHRITIS [None]
  - JOINT SWELLING [None]
  - JOINT STIFFNESS [None]
  - WRONG TECHNIQUE IN DRUG USAGE PROCESS [None]
